APPROVED DRUG PRODUCT: IMIQUIMOD
Active Ingredient: IMIQUIMOD
Strength: 5%
Dosage Form/Route: CREAM;TOPICAL
Application: A091308 | Product #001
Applicant: APOTEX INC
Approved: Apr 6, 2012 | RLD: No | RS: No | Type: DISCN